FAERS Safety Report 6696305-4 (Version None)
Quarter: 2010Q2

REPORT INFORMATION
  Report Type: 
  Country: None (occurrence: None)
  Receive Date: 20100426
  Receipt Date: 20100322
  Transmission Date: 20101027
  Serious: Yes (Death, Other)
  Sender: FDA-Public Use
  Company Number: US-BAXTER-2010BH001587

PATIENT
  Age: 24 Year
  Sex: Female

DRUGS (4)
  1. HEPARIN SODIUM INJECTION [Suspect]
     Indication: DRUG USE FOR UNKNOWN INDICATION
     Route: 058
     Dates: start: 20080203, end: 20080205
  2. ALBUTEROL [Concomitant]
     Indication: DRUG USE FOR UNKNOWN INDICATION
     Route: 065
  3. METOPROLOL TARTRATE [Concomitant]
     Indication: DRUG USE FOR UNKNOWN INDICATION
     Route: 065
  4. LISINOPRIL [Concomitant]
     Indication: DRUG USE FOR UNKNOWN INDICATION
     Route: 065

REACTIONS (15)
  - ARRHYTHMIA [None]
  - BRADYCARDIA [None]
  - BRAIN HERNIATION [None]
  - CARDIAC ARREST [None]
  - CEREBELLAR HAEMORRHAGE [None]
  - CEREBELLAR INFARCTION [None]
  - DEFORMITY THORAX [None]
  - ENDOCARDITIS [None]
  - HEART DISEASE CONGENITAL [None]
  - HEPARIN-INDUCED THROMBOCYTOPENIA [None]
  - HYPOTENSION [None]
  - OEDEMA PERIPHERAL [None]
  - RESPIRATORY DISTRESS [None]
  - SKIN LESION [None]
  - THROMBOCYTOPENIA [None]
